FAERS Safety Report 23989265 (Version 1)
Quarter: 2024Q2

REPORT INFORMATION
  Report Type: Spontaneous
  Country: SI (occurrence: SI)
  Receive Date: 20240619
  Receipt Date: 20240619
  Transmission Date: 20240716
  Serious: Yes (Other)
  Sender: FDA-Public Use
  Company Number: SI-BIOGEN-2024BI01269284

PATIENT
  Age: 48 Year
  Sex: Female

DRUGS (4)
  1. TYSABRI [Suspect]
     Active Substance: NATALIZUMAB
     Indication: Multiple sclerosis
     Route: 050
     Dates: start: 201710
  2. COPAXONE [Concomitant]
     Active Substance: GLATIRAMER ACETATE
     Indication: Multiple sclerosis
     Route: 050
     Dates: start: 2015
  3. AUBAGIO [Concomitant]
     Active Substance: TERIFLUNOMIDE
     Indication: Multiple sclerosis
     Route: 050
     Dates: start: 2016
  4. BETAFERON [Concomitant]
     Active Substance: INTERFERON BETA-1B
     Indication: Multiple sclerosis
     Route: 050
     Dates: start: 1998

REACTIONS (6)
  - Acute myocardial infarction [Unknown]
  - Intracranial aneurysm [Unknown]
  - Coronary artery stenosis [Recovered/Resolved]
  - Coronary artery occlusion [Recovered/Resolved]
  - Coronary artery disease [Unknown]
  - Multiple sclerosis relapse [Unknown]

NARRATIVE: CASE EVENT DATE: 20170101
